FAERS Safety Report 4586971-1 (Version None)
Quarter: 2005Q1

REPORT INFORMATION
  Report Type: 
  Country: None (occurrence: None)
  Receive Date: 20050218
  Receipt Date: 20050114
  Transmission Date: 20050727
  Serious: Yes (Other)
  Sender: FDA-Public Use
  Company Number: DE-MERCK-0501USA02734

PATIENT

DRUGS (1)
  1. ELSPAR [Suspect]
     Indication: ACUTE LYMPHOCYTIC LEUKAEMIA
     Route: 065

REACTIONS (10)
  - BLOOD DISORDER [None]
  - COMA [None]
  - CONVULSION [None]
  - DISORIENTATION [None]
  - EMBOLISM [None]
  - HAEMORRHAGE [None]
  - HAEMORRHAGE INTRACRANIAL [None]
  - HAEMORRHAGIC INFARCTION [None]
  - HEMIPARESIS [None]
  - THROMBOSIS [None]
